FAERS Safety Report 8955230 (Version 1)
Quarter: 2012Q4

REPORT INFORMATION
  Report Type: Report from Study
  Country: DE (occurrence: DE)
  Receive Date: 20121207
  Receipt Date: 20121207
  Transmission Date: 20130627
  Serious: Yes (Hospitalization)
  Sender: FDA-Public Use
  Company Number: DE-ABBOTT-12P-062-1018105-00

PATIENT
  Age: 73 Year
  Sex: Female
  Weight: 85 kg

DRUGS (15)
  1. HUMIRA [Suspect]
     Indication: ANKYLOSING SPONDYLITIS
     Route: 050
     Dates: start: 2011, end: 201210
  2. METHOTREXATE [Concomitant]
     Indication: ANKYLOSING SPONDYLITIS
     Route: 058
     Dates: start: 1999
  3. FOLIC ACID [Concomitant]
     Indication: PRODUCT USED FOR UNKNOWN INDICATION
     Dates: start: 1999
  4. PREDNISOLONE [Concomitant]
     Indication: ANKYLOSING SPONDYLITIS
  5. CALCIUM/VITAMIN D3 [Concomitant]
     Indication: OSTEOPOROSIS
     Dosage: 500 mg + 400 IU
     Route: 048
  6. ALENDRON ACID [Concomitant]
     Indication: OSTEOPOROSIS
     Route: 048
  7. PANTOPRAZOL [Concomitant]
     Indication: GASTRIC DISORDER
     Route: 048
  8. PANTOPRAZOL [Concomitant]
     Indication: PROPHYLAXIS
  9. METOPROLOL [Concomitant]
     Indication: HYPERTENSION
  10. TORASEMID [Concomitant]
     Indication: PRODUCT USED FOR UNKNOWN INDICATION
  11. PREGABALIN [Concomitant]
     Indication: PRODUCT USED FOR UNKNOWN INDICATION
     Dosage: 225 mg daily
  12. CETIRIZIN [Concomitant]
     Indication: PRODUCT USED FOR UNKNOWN INDICATION
  13. SIMVASTATIN [Concomitant]
     Indication: DYSLIPIDAEMIA
  14. ETORICOXIB [Concomitant]
     Indication: PRODUCT USED FOR UNKNOWN INDICATION
  15. MARCUMAR [Concomitant]
     Indication: THROMBOSIS PROPHYLAXIS

REACTIONS (5)
  - Synovitis [Not Recovered/Not Resolved]
  - Ankylosing spondylitis [Not Recovered/Not Resolved]
  - Escherichia urinary tract infection [Unknown]
  - Fibromyalgia [Not Recovered/Not Resolved]
  - Drug ineffective [Unknown]
